FAERS Safety Report 4854513-9 (Version None)
Quarter: 2005Q4

REPORT INFORMATION
  Report Type: 
  Country: None (occurrence: None)
  Receive Date: 20051213
  Receipt Date: 20051202
  Transmission Date: 20060501
  Serious: Yes (Other)
  Sender: FDA-Public Use
  Company Number: 2005165030

PATIENT
  Age: 51 Year
  Sex: Female

DRUGS (5)
  1. LYRICA [Suspect]
     Indication: PAIN
     Dosage: 75 MG ORAL
     Route: 048
     Dates: start: 20051004, end: 20051101
  2. LANSOPRAZOLE [Concomitant]
  3. BISOPROLOL (BISOPROLOL) [Concomitant]
  4. IBUPROFEN [Concomitant]
  5. TRAMADOL HCL [Concomitant]

REACTIONS (2)
  - DRUG INEFFECTIVE [None]
  - DRUG WITHDRAWAL SYNDROME [None]
